FAERS Safety Report 8934685 (Version 2)
Quarter: 2014Q1

REPORT INFORMATION
  Report Type: Spontaneous
  Country: US (occurrence: US)
  Receive Date: 20121129
  Receipt Date: 20140114
  Transmission Date: 20141002
  Serious: Yes (Other)
  Sender: FDA-Public Use
  Company Number: US-BAYER-2012-124764

PATIENT
  Age: 33 Year
  Sex: Female

DRUGS (5)
  1. YAZ [Suspect]
  2. YASMIN [Suspect]
  3. OCELLA [Suspect]
  4. PAXIL [Concomitant]
  5. PRILOSEC [Concomitant]

REACTIONS (8)
  - Gallbladder injury [None]
  - Cholecystitis chronic [None]
  - Gallbladder disorder [None]
  - Pain [None]
  - Fear of disease [None]
  - Injury [None]
  - Emotional distress [None]
  - Pain [None]
